FAERS Safety Report 14667152 (Version 1)
Quarter: 2018Q1

REPORT INFORMATION
  Report Type: Spontaneous
  Country: FR (occurrence: FR)
  Receive Date: 20180322
  Receipt Date: 20180322
  Transmission Date: 20180509
  Serious: Yes (Other)
  Sender: FDA-Public Use
  Company Number: FR-MERCK KGAA-2044279

PATIENT
  Age: 71 Year
  Sex: Female

DRUGS (1)
  1. NOVOTHYROX [Suspect]
     Active Substance: LEVOTHYROXINE SODIUM
     Indication: PRODUCT USED FOR UNKNOWN INDICATION
     Dates: start: 201708

REACTIONS (17)
  - Somnolence [None]
  - Pruritus [None]
  - Blood immunoglobulin E increased [None]
  - Loss of personal independence in daily activities [None]
  - Irritability [None]
  - Depressed mood [None]
  - Fall [None]
  - Social avoidant behaviour [None]
  - Fatigue [None]
  - Stress [None]
  - Fear of falling [None]
  - Psychiatric symptom [None]
  - Somnolence [None]
  - Balance disorder [None]
  - Rash [None]
  - Dizziness [None]
  - Anxiety [None]

NARRATIVE: CASE EVENT DATE: 201708
